FAERS Safety Report 12483230 (Version 3)
Quarter: 2016Q3

REPORT INFORMATION
  Report Type: Report from Study
  Country: US (occurrence: US)
  Receive Date: 20160621
  Receipt Date: 20160920
  Transmission Date: 20161109
  Serious: Yes (Hospitalization, Other)
  Sender: FDA-Public Use
  Company Number: US-AMGEN-USASL2016075967

PATIENT
  Age: 74 Year
  Sex: Female

DRUGS (1)
  1. REPATHA [Suspect]
     Active Substance: EVOLOCUMAB
     Indication: HYPERCHOLESTEROLAEMIA
     Dosage: 140 MG, Q2WK
     Route: 065

REACTIONS (7)
  - Myocardial infarction [Unknown]
  - Coronary artery occlusion [Not Recovered/Not Resolved]
  - Diabetes mellitus [Unknown]
  - Drug ineffective [Unknown]
  - Asthenia [Not Recovered/Not Resolved]
  - Pneumonia [Unknown]
  - Amputation [Unknown]

NARRATIVE: CASE EVENT DATE: 20160605
